FAERS Safety Report 5496189-6 (Version None)
Quarter: 2007Q4

REPORT INFORMATION
  Report Type: 
  Country: None (occurrence: None)
  Receive Date: 20071025
  Receipt Date: 20071023
  Transmission Date: 20080405
  Serious: Yes (Hospitalization, Other)
  Sender: FDA-Public Use
  Company Number: AR-BRISTOL-MYERS SQUIBB COMPANY-13945811

PATIENT
  Age: 65 Year
  Sex: Male

DRUGS (5)
  1. IRBESARTAN [Suspect]
     Indication: CARDIAC FAILURE
     Dosage: 02DEC04-15DEC04 75 MG, 16DEC04-29DEC04 150 MG, 30DEC04-CONT 300 MG.
     Route: 048
     Dates: start: 20041202
  2. BLINDED: PLACEBO [Suspect]
     Indication: CARDIAC FAILURE
     Route: 048
     Dates: start: 20041202
  3. CARVEDILOL [Concomitant]
     Dates: start: 20040601
  4. AMLODIPINE [Concomitant]
     Dates: start: 20040601
  5. FUROSEMIDE [Concomitant]
     Dates: start: 20040601

REACTIONS (1)
  - SYNCOPE [None]
